APPROVED DRUG PRODUCT: KETOROLAC TROMETHAMINE
Active Ingredient: KETOROLAC TROMETHAMINE
Strength: 30MG/ML
Dosage Form/Route: INJECTABLE;INJECTION
Application: A075230 | Product #001
Applicant: BEDFORD LABORATORIES DIV BEN VENUE LABORATORIES INC
Approved: Oct 25, 1999 | RLD: No | RS: No | Type: DISCN